FAERS Safety Report 9022202 (Version 1)
Quarter: 2013Q1

REPORT INFORMATION
  Report Type: Report from Study
  Country: FR (occurrence: FR)
  Receive Date: 20130118
  Receipt Date: 20130118
  Transmission Date: 20140127
  Serious: Yes (Other)
  Sender: FDA-Public Use
  Company Number: FR-BAXTER-2013BAX001327

PATIENT
  Age: 10 None
  Sex: Male
  Weight: 19.8 kg

DRUGS (8)
  1. ENDOXAN 2000 MG, LYOPHILISAT POUR SOLUTION INJECTABLE [Suspect]
     Indication: RHABDOMYOSARCOMA
     Route: 042
     Dates: start: 20101103
  2. BEVACIZUMAB [Suspect]
     Indication: RHABDOMYOSARCOMA
     Route: 042
     Dates: start: 20101103, end: 20110127
  3. BEVACIZUMAB [Suspect]
     Route: 042
     Dates: start: 20110610
  4. ACTINOMYCIN D [Suspect]
     Indication: RHABDOMYOSARCOMA
     Route: 042
     Dates: start: 20101103
  5. ACTINOMYCIN D [Suspect]
     Route: 042
     Dates: start: 20110127
  6. DOXORUBICIN [Suspect]
     Indication: RHABDOMYOSARCOMA
     Route: 042
     Dates: start: 20111103
  7. DOXORUBICIN [Suspect]
     Route: 042
     Dates: start: 20110601
  8. VINCRISTINE [Suspect]
     Indication: RHABDOMYOSARCOMA
     Route: 042
     Dates: start: 20101103

REACTIONS (1)
  - Skin exfoliation [Recovered/Resolved]
